FAERS Safety Report 9495147 (Version 2)
Quarter: 2013Q3

REPORT INFORMATION
  Report Type: Spontaneous
  Country: JP (occurrence: JP)
  Receive Date: 20130903
  Receipt Date: 20130916
  Transmission Date: 20140515
  Serious: Yes (Other)
  Sender: FDA-Public Use
  Company Number: JP-BAYER-2013-103926

PATIENT
  Sex: 0
  Weight: .41 kg

DRUGS (14)
  1. ADALAT [Suspect]
     Dosage: DAILY DOSE 10 MG
     Route: 064
  2. ADALAT [Suspect]
     Dosage: DAILY DOSE 10 MG
     Route: 064
  3. PLASMA [Concomitant]
     Dosage: DAILY DOSE 4 DF
     Route: 064
  4. PLASMA [Concomitant]
     Dosage: DAILY DOSE 4 DF
     Route: 064
  5. PLASMA [Concomitant]
     Dosage: DAILY DOSE 5 DF
     Route: 064
  6. PLASMA [Concomitant]
     Dosage: DAILY DOSE 2 DF
     Route: 064
  7. HYDRALAZINE HYDROCHLORIDE [Concomitant]
     Dosage: DAILY DOSE 40 MG
     Route: 064
  8. HYDRALAZINE HYDROCHLORIDE [Concomitant]
     Dosage: DAILY DOSE 60 MG
     Route: 064
  9. HYDRALAZINE HYDROCHLORIDE [Concomitant]
     Dosage: DAILY DOSE 90 MG
     Route: 064
  10. HYDRALAZINE HYDROCHLORIDE [Concomitant]
     Dosage: DAILY DOSE 120 MG
     Route: 064
  11. HYDRALAZINE HYDROCHLORIDE [Concomitant]
     Dosage: UNK
     Route: 064
  12. HYDRALAZINE HYDROCHLORIDE [Concomitant]
     Route: 064
  13. METHYLDOPA [Concomitant]
     Dosage: DAILY DOSE 750 MG
     Route: 064
  14. METHYLDOPA [Concomitant]
     Dosage: DAILY DOSE 1000 MG
     Route: 064

REACTIONS (6)
  - Foetal growth restriction [None]
  - Low birth weight baby [None]
  - Foetal exposure during pregnancy [None]
  - Premature baby [None]
  - Bradycardia neonatal [None]
  - Cyanosis neonatal [None]
